FAERS Safety Report 22518229 (Version 1)
Quarter: 2023Q2

REPORT INFORMATION
  Report Type: Other
  Country: KR (occurrence: None)
  Receive Date: 20230605
  Receipt Date: 20230605
  Transmission Date: 20230722
  Serious: Yes (Other)
  Sender: FDA-Public Use
  Company Number: KR-ROCHE-3358882

PATIENT

DRUGS (1)
  1. TOCILIZUMAB [Suspect]
     Active Substance: TOCILIZUMAB
     Indication: Product used for unknown indication
     Dosage: IN 0.9ML
     Route: 058

REACTIONS (19)
  - Neutropenia [Unknown]
  - Alanine aminotransferase increased [Unknown]
  - Aspartate aminotransferase increased [Unknown]
  - Blood creatine phosphokinase increased [Unknown]
  - Neutrophil count decreased [Unknown]
  - Headache [Unknown]
  - White blood cell count decreased [Unknown]
  - Blood pressure increased [Unknown]
  - Hypertriglyceridaemia [Unknown]
  - Cough [Unknown]
  - Ligament sprain [Unknown]
  - Oropharyngeal pain [Unknown]
  - Nausea [Unknown]
  - Diarrhoea [Unknown]
  - Arthralgia [Unknown]
  - Infection [Unknown]
  - Hypersensitivity [Unknown]
  - COVID-19 [Unknown]
  - Injection site reaction [Unknown]
